FAERS Safety Report 7449119-1 (Version None)
Quarter: 2011Q2

REPORT INFORMATION
  Report Type: 
  Country: None (occurrence: None)
  Receive Date: 20110502
  Receipt Date: 20101214
  Transmission Date: 20111010
  Serious: Yes (Hospitalization, Other)
  Sender: FDA-Public Use
  Company Number: US-BAYER-2010-003208

PATIENT
  Age: 28 Year
  Sex: Female
  Weight: 47.619 kg

DRUGS (8)
  1. ADVIL LIQUI-GELS [Concomitant]
     Dosage: UNK
     Dates: start: 19920101
  2. YAZ [Suspect]
     Indication: CONTRACEPTION
     Dosage: UNK
     Dates: start: 20030101, end: 20070101
  3. TYLENOL REGULAR [Concomitant]
     Indication: ANALGESIC THERAPY
  4. PHENERGAN HCL [Concomitant]
  5. YASMIN [Suspect]
     Dosage: UNK
     Dates: start: 20080101
  6. PERCOCET [Concomitant]
  7. YASMIN [Suspect]
     Indication: CONTRACEPTION
     Dosage: UNK
     Dates: start: 20020101, end: 20050101
  8. ZOLOFT [Concomitant]

REACTIONS (6)
  - CHOLECYSTITIS CHRONIC [None]
  - GALLBLADDER DISORDER [None]
  - HEADACHE [None]
  - ABDOMINAL PAIN [None]
  - VOMITING [None]
  - NAUSEA [None]
